FAERS Safety Report 11043845 (Version 2)
Quarter: 2015Q2

REPORT INFORMATION
  Report Type: Spontaneous
  Country: US (occurrence: US)
  Receive Date: 20150417
  Receipt Date: 20150417
  Transmission Date: 20150821
  Serious: Yes (Other)
  Sender: FDA-Public Use
  Company Number: US-PERRIGO-15US003713

PATIENT
  Age: 30 Year
  Sex: Male

DRUGS (2)
  1. TESTOSTERONE 1% 1C2 [Suspect]
     Active Substance: TESTOSTERONE
     Indication: HORMONE REPLACEMENT THERAPY
     Dosage: 50 MG, QD
     Route: 061
  2. TESTOSTERONE 1% 1C2 [Suspect]
     Active Substance: TESTOSTERONE
     Dosage: 50 MG, QD
     Route: 061

REACTIONS (1)
  - Osteonecrosis [Not Recovered/Not Resolved]
